FAERS Safety Report 17624419 (Version 5)
Quarter: 2020Q2

REPORT INFORMATION
  Report Type: Spontaneous
  Country: IN (occurrence: IN)
  Receive Date: 20200403
  Receipt Date: 20200428
  Transmission Date: 20200713
  Serious: Yes (Life-Threatening, Hospitalization, Other)
  Sender: FDA-Public Use
  Company Number: IN-PFIZER INC-2020136612

PATIENT
  Age: 35 Year
  Sex: Female
  Weight: 44 kg

DRUGS (8)
  1. PENTAZOCINE [Concomitant]
     Active Substance: PENTAZOCINE
     Indication: PREMEDICATION
     Dosage: 20 MG, UNK(INJECTION)
  2. LIGNOCAINE [LIDOCAINE] [Suspect]
     Active Substance: LIDOCAINE
     Indication: DRUG THERAPY
     Dosage: 30 ML, UNK (3 AMPULES OF ADRENALINE (1:2,00,000) ADDED WITH 30 ML OF LIGNOCAINE IN BOWL (CONCENTRATI
     Route: 045
  3. MIDAZOLAM. [Concomitant]
     Active Substance: MIDAZOLAM
     Indication: PREMEDICATION
     Dosage: 1 MG, UNK
     Route: 042
  4. VASOCON [EPINEPHRINE BITARTRATE] [Suspect]
     Active Substance: EPINEPHRINE BITARTRATE
     Indication: DRUG THERAPY
     Dosage: 3 MG (3 AMPULES ADRENALINE(1:2,00,000) ADDED W/ 30ML LIGNOCAINE (RESULTANT CONCENTRATION:100MCG/ML)
     Route: 045
  5. DEXMEDETOMIDINE HYDROCHLORIDE. [Suspect]
     Active Substance: DEXMEDETOMIDINE HYDROCHLORIDE
     Indication: PREMEDICATION
     Dosage: UNK, (20 MICROGRAM, QH)
     Route: 041
  6. DEXMEDETOMIDINE HYDROCHLORIDE. [Suspect]
     Active Substance: DEXMEDETOMIDINE HYDROCHLORIDE
     Dosage: UNK, (24 UG/HR, WITHIN 5 MINUTES OF NASAL PACKING)
     Route: 041
  7. DEXMEDETOMIDINE HYDROCHLORIDE. [Suspect]
     Active Substance: DEXMEDETOMIDINE HYDROCHLORIDE
     Indication: SEDATIVE THERAPY
     Dosage: UNK, (16 MICROGRAM QH)
     Route: 041
  8. GLYCOPYRROLATE [GLYCOPYRRONIUM] [Concomitant]
     Active Substance: GLYCOPYRRONIUM
     Indication: PREMEDICATION
     Dosage: 0.2 MG, UNK

REACTIONS (9)
  - Pulmonary oedema [Recovered/Resolved]
  - Anuria [Recovered/Resolved]
  - Incorrect dose administered [Recovered/Resolved]
  - Ventricular extrasystoles [Recovered/Resolved]
  - Circulatory collapse [Recovered/Resolved]
  - Myocardial ischaemia [Recovered/Resolved]
  - Metabolic acidosis [Recovered/Resolved]
  - Hypertension [Recovered/Resolved]
  - Hypoxia [Recovered/Resolved]
